FAERS Safety Report 25461270 (Version 1)
Quarter: 2025Q2

REPORT INFORMATION
  Report Type: Report from Study
  Country: ES (occurrence: ES)
  Receive Date: 20250620
  Receipt Date: 20250620
  Transmission Date: 20250717
  Serious: Yes (Death, Hospitalization)
  Sender: ABBVIE
  Company Number: ES-ABBVIE-6334994

PATIENT
  Age: 80 Year
  Sex: Male

DRUGS (1)
  1. FOSCARBIDOPA\FOSLEVODOPA [Suspect]
     Active Substance: FOSCARBIDOPA\FOSLEVODOPA
     Indication: Parkinson^s disease
     Route: 058
     Dates: start: 20240123

REACTIONS (3)
  - Faecaloma [Fatal]
  - Pneumonia [Fatal]
  - Post procedural infection [Not Recovered/Not Resolved]

NARRATIVE: CASE EVENT DATE: 20250101
